FAERS Safety Report 21170884 (Version 3)
Quarter: 2022Q3

REPORT INFORMATION
  Report Type: Spontaneous
  Country: AU (occurrence: AU)
  Receive Date: 20220804
  Receipt Date: 20220812
  Transmission Date: 20221027
  Serious: Yes (Life-Threatening, Hospitalization, Other)
  Sender: FDA-Public Use
  Company Number: AU-MYLANLABS-2022M1083550

PATIENT
  Sex: Female

DRUGS (2)
  1. CLOZARIL [Suspect]
     Active Substance: CLOZAPINE
     Indication: Schizophrenia
     Dosage: 700 MILLIGRAM
     Route: 048
     Dates: start: 19940224
  2. CLOZARIL [Suspect]
     Active Substance: CLOZAPINE
     Dosage: UNK (100MG MORNING + 400MG AT NIGHT)
     Route: 065

REACTIONS (4)
  - Acute kidney injury [Recovering/Resolving]
  - Intestinal obstruction [Recovering/Resolving]
  - Ileus [Unknown]
  - Malaise [Unknown]
